FAERS Safety Report 5973856-9 (Version None)
Quarter: 2008Q4

REPORT INFORMATION
  Report Type: 
  Country: None (occurrence: None)
  Receive Date: 20081125
  Receipt Date: 20081114
  Transmission Date: 20090506
  Serious: Yes (Hospitalization)
  Sender: FDA-Public Use
  Company Number: SPV1-2008-02528

PATIENT
  Age: 64 Year
  Sex: Male
  Weight: 92.1 kg

DRUGS (19)
  1. FOSRENOL [Suspect]
     Indication: RENAL DISORDER
     Dosage: 500 MG, WITH MEALS, ORAL
     Route: 048
     Dates: start: 20080301
  2. NOVOLOG [Concomitant]
  3. LANTUS [Concomitant]
  4. NIASPAN [Concomitant]
  5. HYDROCHLOROTHIAZIDE [Concomitant]
  6. ASPIRIN [Concomitant]
  7. LIPITOR [Concomitant]
  8. NORVASC /00972401/) (AMLODIPINE) [Concomitant]
  9. TOPROL-XL [Concomitant]
  10. COUMADIN /0014802/ (WARFARIN SODIUM) [Concomitant]
  11. CARDURA /00639301/ (DOXASOSIN) [Concomitant]
  12. IMUR (ISOSORBIDE MONONITRATE) [Concomitant]
  13. FLOMAX /00889901/ (MORNIFLUMATE) [Concomitant]
  14. ACIPHEX [Concomitant]
  15. SYNTHROID [Concomitant]
  16. PLAVIX [Concomitant]
  17. VITAMIN B COMPLEX /00003501/ (CALCIUM PANTOTHENATE, NICOTINAMIDE, PYRI [Concomitant]
  18. LISINOPRIL [Concomitant]
  19. NAMENDA [Concomitant]

REACTIONS (3)
  - ARTERIOVENOUS FISTULA OCCLUSION [None]
  - ARTERIOVENOUS FISTULA THROMBOSIS [None]
  - CORONARY ARTERY OCCLUSION [None]
